FAERS Safety Report 5002437-9 (Version None)
Quarter: 2006Q2

REPORT INFORMATION
  Report Type: 
  Country: None (occurrence: None)
  Receive Date: 20060510
  Receipt Date: 20060502
  Transmission Date: 20061013
  Serious: Yes (Other)
  Sender: FDA-Public Use
  Company Number: 223424

PATIENT
  Age: 84 Year
  Sex: Female

DRUGS (7)
  1. AVASTIN [Suspect]
     Indication: MACULAR DEGENERATION
     Dosage: 1.25 MG, INTRAOCULAR
     Route: 031
     Dates: start: 20051129
  2. TOPROL-XL [Concomitant]
  3. DILTIAZEM HCL [Concomitant]
  4. PRAVACHOL [Concomitant]
  5. COLACE (DOCUSATE SODIUM) [Concomitant]
  6. PROTONIX [Concomitant]
  7. MULTIVITAMIN (MULTIVITAMINS NOS) [Concomitant]

REACTIONS (1)
  - BLOOD PRESSURE SYSTOLIC INCREASED [None]
